FAERS Safety Report 25085455 (Version 1)
Quarter: 2025Q1

REPORT INFORMATION
  Report Type: Spontaneous
  Country: US (occurrence: None)
  Receive Date: 20250314
  Receipt Date: 20250314
  Transmission Date: 20250409
  Serious: Yes (Other)
  Sender: FDA-CTU
  Company Number: None

PATIENT
  Age: 73 Year
  Sex: Female
  Weight: 54 kg

DRUGS (1)
  1. XEMBIFY [Suspect]
     Active Substance: HUMAN IMMUNOGLOBULIN G
     Indication: Immunodeficiency common variable
     Route: 058
     Dates: start: 20250311

REACTIONS (5)
  - Injection site urticaria [None]
  - Injection site pain [None]
  - Injection site swelling [None]
  - Injection site erythema [None]
  - Injection site bruising [None]

NARRATIVE: CASE EVENT DATE: 20250311
